FAERS Safety Report 4388302-9 (Version None)
Quarter: 2004Q2

REPORT INFORMATION
  Report Type: 
  Country: None (occurrence: None)
  Receive Date: 20040629
  Receipt Date: 20040616
  Transmission Date: 20050107
  Serious: No
  Sender: FDA-Public Use
  Company Number: 2004UW12678

PATIENT
  Age: 63 Year
  Sex: Male
  Weight: 88.905 kg

DRUGS (1)
  1. CRESTOR [Suspect]
     Dosage: 10 MG QD PO
     Route: 048
     Dates: start: 20040520, end: 20040525

REACTIONS (3)
  - CEREBROVASCULAR ACCIDENT [None]
  - DRUG HYPERSENSITIVITY [None]
  - EOSINOPHIL COUNT INCREASED [None]
